FAERS Safety Report 20648105 (Version 1)
Quarter: 2022Q1

REPORT INFORMATION
  Report Type: Spontaneous
  Country: US (occurrence: None)
  Receive Date: 20220328
  Receipt Date: 20220328
  Transmission Date: 20220424
  Serious: Yes (Disabling)
  Sender: FDA-Public Use
  Company Number: None

PATIENT
  Age: 41 Year
  Sex: Female
  Weight: 69.75 kg

DRUGS (8)
  1. OLMESARTAN MEDOXOMIL [Suspect]
     Active Substance: OLMESARTAN MEDOXOMIL
     Indication: Hypertension
     Dosage: FREQUENCY : DAILY; ?QUANTITY: 30 TABLETS?
     Route: 048
     Dates: start: 20220221, end: 20220321
  2. SYNTHROID [Concomitant]
     Active Substance: LEVOTHYROXINE SODIUM
  3. MONTELUKAST [Concomitant]
     Active Substance: MONTELUKAST SODIUM
  4. One a day women^s multi-vitamin [Concomitant]
  5. CALCIUM CARBONATE [Concomitant]
     Active Substance: CALCIUM CARBONATE
  6. DOCUSATE SODIUM [Concomitant]
     Active Substance: DOCUSATE SODIUM
  7. CETIRIZINE [Concomitant]
     Active Substance: CETIRIZINE HYDROCHLORIDE
  8. fluticasone nasal spray [Concomitant]

REACTIONS (8)
  - Muscle tightness [None]
  - Muscle tightness [None]
  - Muscle tightness [None]
  - Myalgia [None]
  - Headache [None]
  - Bruxism [None]
  - Loss of personal independence in daily activities [None]
  - Inflammation [None]

NARRATIVE: CASE EVENT DATE: 20220305
